FAERS Safety Report 8958615 (Version 1)
Quarter: 2012Q4

REPORT INFORMATION
  Report Type: Spontaneous
  Country: US (occurrence: None)
  Receive Date: 20121206
  Receipt Date: 20121206
  Transmission Date: 20130627
  Serious: Yes (Other)
  Sender: FDA-Public Use
  Company Number: None

PATIENT
  Age: 17 Year
  Sex: Female
  Weight: 54.43 kg

DRUGS (1)
  1. MIRENA [Suspect]
     Indication: BIRTH CONTROL
     Dosage: iud iud intra-uterine
     Route: 015
     Dates: start: 20080915, end: 20081227

REACTIONS (8)
  - Discomfort [None]
  - Haemorrhage [None]
  - Dysmenorrhoea [None]
  - Polymenorrhoea [None]
  - Infertility female [None]
  - Treatment failure [None]
  - Depression [None]
  - Suicidal ideation [None]
